FAERS Safety Report 19504252 (Version 2)
Quarter: 2022Q2

REPORT INFORMATION
  Report Type: Spontaneous
  Country: US (occurrence: US)
  Receive Date: 20210707
  Receipt Date: 20220503
  Transmission Date: 20220721
  Serious: No
  Sender: FDA-Public Use
  Company Number: US-PFIZER INC-2016510579

PATIENT
  Age: 68 Year
  Sex: Male

DRUGS (3)
  1. LYRICA [Suspect]
     Active Substance: PREGABALIN
     Indication: Type 2 diabetes mellitus
     Dosage: 75 MG, 3X/DAY (75MG CAPSULE, 1 CAP, THREE TIMES A DAY)
     Route: 048
  2. LYRICA [Suspect]
     Active Substance: PREGABALIN
     Indication: Diabetic neuropathy
     Dosage: 150 MG, 3X/DAY (150MG CAPSULE, 1 CAP, THREE TIMES A DAY)
     Route: 048
  3. LYRICA [Suspect]
     Active Substance: PREGABALIN
     Dosage: 300 MG, 2X/DAY (300MG CAPSULE, 1 CAP, TWO TIMES DAILY)
     Route: 048

REACTIONS (9)
  - Vascular rupture [Unknown]
  - Limb injury [Unknown]
  - Sensory disturbance [Unknown]
  - Onychomycosis [Unknown]
  - Nail disorder [Unknown]
  - Muscle spasms [Unknown]
  - Pain in extremity [Unknown]
  - Neuritis [Unknown]
  - Off label use [Unknown]
